FAERS Safety Report 9693803 (Version 2)
Quarter: 2013Q4

REPORT INFORMATION
  Report Type: Spontaneous
  Country: GB (occurrence: GB)
  Receive Date: 20131118
  Receipt Date: 20131206
  Transmission Date: 20140711
  Serious: Yes (Other)
  Sender: FDA-Public Use
  Company Number: PHHY2013GB130031

PATIENT
  Age: 75 Year
  Sex: Male

DRUGS (3)
  1. TAMSULOSIN [Suspect]
     Indication: PROSTATOMEGALY
     Dosage: 400 UG, QD AT NIGHT
  2. AMLODIPINE [Concomitant]
     Dosage: 5 MG, QD
     Route: 065
  3. LEVOTHYROXINE [Concomitant]
     Dosage: 125 UG

REACTIONS (11)
  - Parosmia [Not Recovered/Not Resolved]
  - Oropharyngeal pain [Not Recovered/Not Resolved]
  - Lacrimation increased [Not Recovered/Not Resolved]
  - Lethargy [Not Recovered/Not Resolved]
  - Feeling abnormal [Not Recovered/Not Resolved]
  - Condition aggravated [Not Recovered/Not Resolved]
  - Sinus disorder [Not Recovered/Not Resolved]
  - Drug dose omission [Unknown]
  - Vision blurred [Not Recovered/Not Resolved]
  - Dizziness [Not Recovered/Not Resolved]
  - Pruritus [Not Recovered/Not Resolved]
